FAERS Safety Report 9563420 (Version 1)
Quarter: 2013Q1

REPORT INFORMATION
  Report Type: Spontaneous
  Country: US (occurrence: None)
  Receive Date: 20121218
  Receipt Date: 20121218
  Transmission Date: 20140127
  Serious: Yes (Disabling)
  Sender: FDA-Public Use
  Company Number: PHEH2012US012103

PATIENT
  Age: 68 Year
  Sex: Female
  Weight: 68.9 kg

DRUGS (2)
  1. ZOMETA (ZOLEDRONATE) UNKNOWN [Suspect]
     Indication: METASTASES TO BONE
     Route: 042
     Dates: start: 20120214, end: 20120327
  2. XELODA (CAPECITABINE) [Concomitant]

REACTIONS (3)
  - Pain in jaw [None]
  - Myalgia [None]
  - Bone pain [None]
